FAERS Safety Report 16423014 (Version 3)
Quarter: 2019Q3

REPORT INFORMATION
  Report Type: Report from Study
  Country: RU (occurrence: RU)
  Receive Date: 20190612
  Receipt Date: 20190729
  Transmission Date: 20191004
  Serious: Yes (Other)
  Sender: FDA-Public Use
  Company Number: RU-JNJFOC-20190601985

PATIENT

DRUGS (7)
  1. LINEZOLID. [Suspect]
     Active Substance: LINEZOLID
     Route: 042
  2. LINEZOLID. [Suspect]
     Active Substance: LINEZOLID
     Indication: TUBERCULOSIS
     Route: 048
  3. TERIZIDONE [Suspect]
     Active Substance: TERIZIDONE
     Indication: TUBERCULOSIS
     Dosage: 500-750 MG
     Route: 065
  4. SIRTURO [Suspect]
     Active Substance: BEDAQUILINE FUMARATE
     Indication: TUBERCULOSIS
     Route: 048
  5. CYCLOSERINE. [Suspect]
     Active Substance: CYCLOSERINE
     Indication: TUBERCULOSIS
     Dosage: 500-750 MG
     Route: 065
  6. LEVOFLOXACIN. [Suspect]
     Active Substance: LEVOFLOXACIN
     Indication: TUBERCULOSIS
     Route: 065
  7. MOXIFLOXACIN. [Suspect]
     Active Substance: MOXIFLOXACIN
     Indication: TUBERCULOSIS
     Route: 065

REACTIONS (24)
  - Thrombocytopenia [Unknown]
  - Cardiotoxicity [Unknown]
  - Anaemia [Unknown]
  - Visual impairment [Unknown]
  - Neurotoxicity [Unknown]
  - Arthralgia [Unknown]
  - Dry mouth [Unknown]
  - Eosinophilia [Unknown]
  - Electrolyte imbalance [Unknown]
  - Hyperglycaemia [Unknown]
  - Ototoxicity [Unknown]
  - Electrocardiogram QT prolonged [Unknown]
  - Hyperkalaemia [Unknown]
  - Asthenia [Unknown]
  - Multiple allergies [Unknown]
  - Intentional product use issue [Unknown]
  - Hepatotoxicity [Unknown]
  - Blood creatinine increased [Unknown]
  - Drug ineffective [Unknown]
  - Gastrointestinal disorder [Unknown]
  - Adverse drug reaction [Unknown]
  - Off label use [Unknown]
  - Nephropathy toxic [Unknown]
  - Hypomania [Unknown]
